FAERS Safety Report 5229597-9 (Version None)
Quarter: 2007Q1

REPORT INFORMATION
  Report Type: 
  Country: None (occurrence: None)
  Receive Date: 20061201
  Receipt Date: 20060922
  Transmission Date: 20070707
  Serious: No
  Sender: FDA-Public Use
  Company Number: 2006PV021852

PATIENT
  Age: 50 Year
  Sex: Male
  Weight: 111.1313 kg

DRUGS (4)
  1. BYETTA [Suspect]
     Indication: DIABETES MELLITUS NON-INSULIN-DEPENDENT
     Dosage: SEE IMAGE
     Route: 058
     Dates: start: 20060501, end: 20060601
  2. BYETTA [Suspect]
     Indication: DIABETES MELLITUS NON-INSULIN-DEPENDENT
     Dosage: SEE IMAGE
     Route: 058
     Dates: start: 20060601
  3. ACTOS [Concomitant]
  4. METFORMIN [Concomitant]

REACTIONS (4)
  - ANOREXIA [None]
  - INCREASED APPETITE [None]
  - WEIGHT DECREASED [None]
  - WEIGHT INCREASED [None]
